FAERS Safety Report 4684362-6 (Version None)
Quarter: 2005Q2

REPORT INFORMATION
  Report Type: 
  Country: None (occurrence: None)
  Receive Date: 20050531
  Receipt Date: 20040813
  Transmission Date: 20051028
  Serious: Yes (Other)
  Sender: FDA-Public Use
  Company Number: 200416115US

PATIENT
  Age: 28 Year
  Sex: Female

DRUGS (7)
  1. LOVENOX [Suspect]
     Indication: DEEP VEIN THROMBOSIS
     Dosage: 40 MG BID SC; 60 MG BID SC
     Route: 058
     Dates: end: 20040630
  2. LOVENOX [Suspect]
     Indication: THROMBOSIS PROPHYLAXIS
     Dosage: 40 MG BID SC; 60 MG BID SC
     Route: 058
     Dates: end: 20040630
  3. LOVENOX [Suspect]
     Indication: DEEP VEIN THROMBOSIS
     Dosage: 40 MG BID SC; 60 MG BID SC
     Route: 058
     Dates: start: 20040405
  4. LOVENOX [Suspect]
     Indication: THROMBOSIS PROPHYLAXIS
     Dosage: 40 MG BID SC; 60 MG BID SC
     Route: 058
     Dates: start: 20040405
  5. . [Suspect]
  6. HEPARIN [Concomitant]
  7. ASCORBIC ACID, BIOTIN, TOCOPHEROL, NICOTINIC ACID, RETINOL, VITAMIN D [Concomitant]

REACTIONS (1)
  - DEEP VEIN THROMBOSIS [None]
